FAERS Safety Report 9392794 (Version 1)
Quarter: 2013Q3

REPORT INFORMATION
  Report Type: Not Available
  Country: AU (occurrence: AU)
  Receive Date: 20130710
  Receipt Date: 20130710
  Transmission Date: 20140515
  Serious: Yes (Hospitalization)
  Sender: FDA-Public Use
  Company Number: AU-ASTELLAS-2013US007181

PATIENT
  Sex: Male
  Weight: 74 kg

DRUGS (4)
  1. PROGRAF [Suspect]
     Indication: RENAL TRANSPLANT
     Dosage: UNK
     Route: 065
  2. PROGRAF [Suspect]
     Indication: PANCREAS TRANSPLANT
  3. ANTITHYMOCYTE IMMUNOGLOBULIN [Suspect]
     Indication: RENAL TRANSPLANT
     Dosage: 150 MG, UID/QD
     Route: 042
     Dates: start: 20110620
  4. ANTITHYMOCYTE IMMUNOGLOBULIN [Suspect]
     Indication: PANCREAS TRANSPLANT

REACTIONS (3)
  - Off label use [Unknown]
  - Infusion related reaction [Unknown]
  - Spinal artery thrombosis [Unknown]
